FAERS Safety Report 10171500 (Version 2)
Quarter: 2014Q2

REPORT INFORMATION
  Report Type: Spontaneous
  Country: GB (occurrence: GB)
  Receive Date: 20140514
  Receipt Date: 20140604
  Transmission Date: 20141212
  Serious: Yes (Hospitalization, Other)
  Sender: FDA-Public Use
  Company Number: GB-PFIZER INC-2014128990

PATIENT
  Age: 40 Year
  Sex: Male

DRUGS (2)
  1. DEPO-MEDRONE [Suspect]
     Indication: PSORIASIS
     Dosage: UNK
     Route: 030
     Dates: start: 2009, end: 2011
  2. INFLIXIMAB [Suspect]
     Indication: PSORIASIS
     Dosage: UNK
     Route: 042
     Dates: start: 2011, end: 2011

REACTIONS (5)
  - Diabetic amyotrophy [Unknown]
  - Psoriatic arthropathy [Not Recovered/Not Resolved]
  - Diabetes mellitus [Unknown]
  - Synovitis [Unknown]
  - Enthesopathy [Unknown]
